FAERS Safety Report 4485262-7 (Version None)
Quarter: 2004Q3

REPORT INFORMATION
  Report Type: 
  Country: None (occurrence: None)
  Receive Date: 20040921
  Receipt Date: 20040622
  Transmission Date: 20050211
  Serious: Yes (Hospitalization)
  Sender: FDA-Public Use
  Company Number: 163-20785-04060505

PATIENT
  Age: 71 Year
  Sex: Male

DRUGS (10)
  1. THALOMID [Suspect]
     Indication: MULTIPLE MYELOMA
     Dosage: 200 MG, QD, ORAL
     Route: 048
     Dates: start: 20040601, end: 20040604
  2. BORTEZOMIB (BORTEZOMIB) [Suspect]
     Indication: MULTIPLE MYELOMA
     Dosage: 2 MG, EVERY FIFTH DAY, INTRAVENOUS
     Route: 042
     Dates: start: 20040528, end: 20040608
  3. BORTEZOMIB (BORTEZOMIB) [Suspect]
     Indication: MULTIPLE MYELOMA
     Dosage: 2 MG, EVERY FIFTH DAY, INTRAVENOUS
     Route: 042
     Dates: start: 20040601
  4. BORTEZOMIB (BORTEZOMIB) [Suspect]
     Indication: MULTIPLE MYELOMA
     Dosage: 2 MG, EVERY FIFTH DAY, INTRAVENOUS
     Route: 042
     Dates: start: 20040605
  5. BORTEZOMIB (BORTEZOMIB) [Suspect]
     Indication: MULTIPLE MYELOMA
     Dosage: 2 MG, EVERY FIFTH DAY, INTRAVENOUS
     Route: 042
     Dates: start: 20040608
  6. DEXAMETHASONE [Suspect]
     Indication: MULTIPLE MYELOMA
     Dosage: 40 MG, QD, P.O.
     Route: 048
     Dates: start: 20040601, end: 20040604
  7. CISPLATIN [Suspect]
     Indication: MULTIPLE MYELOMA
     Dosage: 20 MG, QD, INTRAVENOUS
     Route: 042
     Dates: start: 20040601, end: 20040604
  8. ADRIAMYCIN PFS [Suspect]
     Indication: MULTIPLE MYELOMA
     Dosage: 20 MG, QD, INTRAVENOUS
     Route: 042
     Dates: start: 20040601, end: 20040604
  9. CYCLOPHOSPHAMIDE [Suspect]
     Indication: MULTIPLE MYELOMA
     Dosage: 800 MG, QD, INTRAVENOUS
     Route: 042
     Dates: start: 20040601, end: 20040604
  10. ETOPOSIDE [Suspect]
     Indication: MULTIPLE MYELOMA
     Dosage: 80 MG, QD, INTRAVENOUS
     Route: 042
     Dates: start: 20040601, end: 20040604

REACTIONS (2)
  - HEAD INJURY [None]
  - SEPTIC SHOCK [None]
